FAERS Safety Report 23584323 (Version 1)
Quarter: 2024Q1

REPORT INFORMATION
  Report Type: Spontaneous
  Country: FR (occurrence: FR)
  Receive Date: 20240301
  Receipt Date: 20240301
  Transmission Date: 20240410
  Serious: Yes (Death, Hospitalization, Other)
  Sender: FDA-Public Use
  Company Number: FR-EMA-DD-20180822-ngevhprod-162639

PATIENT
  Age: 70 Year
  Sex: Male
  Weight: 77.5 kg

DRUGS (13)
  1. AZACITIDINE [Suspect]
     Active Substance: AZACITIDINE
     Indication: Myelodysplastic syndrome
     Dosage: 75 MILLIGRAM/SQ. METER, ONCE A DAY (75 MG/M2, DAILY)
     Route: 058
     Dates: start: 20170529, end: 20170602
  2. AZACITIDINE [Suspect]
     Active Substance: AZACITIDINE
     Dosage: 75 MILLIGRAM/SQ. METER, ONCE A DAY (75 MG/M2, DAILY)
     Route: 058
     Dates: start: 20170626
  3. ODOMZO [Suspect]
     Active Substance: SONIDEGIB
     Indication: Myelodysplastic syndrome
     Dosage: 400 MILLIGRAM, ONCE A DAY (24 HRS)
     Route: 048
     Dates: start: 20170529, end: 20170702
  4. ODOMZO [Suspect]
     Active Substance: SONIDEGIB
     Dosage: 400 MILLIGRAM, ONCE A DAY (24 HRS)
     Route: 048
     Dates: start: 20170724, end: 20170729
  5. RAMIPRIL [Concomitant]
     Active Substance: RAMIPRIL
     Indication: Hypertension
     Dosage: 10 MILLIGRAM, ONCE A DAY (10 MG, QD)
     Route: 048
  6. LANTUS [Concomitant]
     Active Substance: INSULIN GLARGINE
     Indication: Dissociative identity disorder
     Dosage: 56 INTERNATIONAL UNIT, ONCE A DAY (56 IU/D)
     Route: 058
  7. MAGNE B6 [Concomitant]
     Active Substance: MAGNESIUM\PYRIDOXINE
     Indication: Product used for unknown indication
     Dosage: 1 DOSAGE FORM (1 DF, QD (1 TABLET))
     Route: 048
  8. VALACYCLOVIR HYDROCHLORIDE [Concomitant]
     Active Substance: VALACYCLOVIR HYDROCHLORIDE
     Indication: Prophylaxis
     Dosage: 1000 MILLIGRAM, ONCE A DAY (1000 MG, QD)
     Route: 048
  9. AMOXICILLIN [Concomitant]
     Active Substance: AMOXICILLIN
     Indication: Prostatitis
     Dosage: 6 MILLIGRAM
     Route: 048
     Dates: start: 20170712
  10. NOVORAPID [Concomitant]
     Active Substance: INSULIN ASPART
     Indication: Dissociative identity disorder
     Dosage: 30 INTERNATIONAL UNIT (30 IU,)
     Route: 058
  11. LACTULOSE [Concomitant]
     Active Substance: LACTULOSE
     Indication: Constipation
     Dosage: 1 DOSAGE FORM (1 DF, 1 POUCH)
     Route: 048
  12. HYDROXYZINE [Concomitant]
     Active Substance: HYDROXYZINE HYDROCHLORIDE
     Indication: Anxiety
     Dosage: 25 MILLIGRAM
     Route: 048
  13. EXJADE [Concomitant]
     Active Substance: DEFERASIROX
     Indication: Chelation therapy
     Dosage: 1500 MILLIGRAM, ONCE A DAY (1500 MG, QD)
     Route: 048

REACTIONS (1)
  - Sepsis [Fatal]

NARRATIVE: CASE EVENT DATE: 20170702
